FAERS Safety Report 25747805 (Version 2)
Quarter: 2025Q4

REPORT INFORMATION
  Report Type: Spontaneous
  Country: JP (occurrence: JP)
  Receive Date: 20250901
  Receipt Date: 20251211
  Transmission Date: 20260117
  Serious: Yes (Hospitalization, Disabling, Other)
  Sender: MERCK SHARP & DOHME LLC
  Company Number: JP-009507513-2322285

PATIENT
  Age: 67 Year
  Sex: Female

DRUGS (4)
  1. KEYTRUDA [Suspect]
     Active Substance: PEMBROLIZUMAB
     Indication: Cervix carcinoma stage III
     Dosage: 6 COURSES
     Route: 041
     Dates: start: 202503, end: 20250702
  2. CARBOPLATIN [Suspect]
     Active Substance: CARBOPLATIN
     Indication: Cervix carcinoma stage III
     Dosage: AREA UNDER THE CURVE (AUC) 5?6 TIMES
     Route: 041
     Dates: start: 202503, end: 20250702
  3. PACLITAXEL [Suspect]
     Active Substance: PACLITAXEL
     Indication: Cervix carcinoma stage III
     Dosage: 175MG/M2 X 6 TIMES
     Route: 041
     Dates: start: 202503, end: 20250702
  4. BEVACIZUMAB [Suspect]
     Active Substance: BEVACIZUMAB
     Indication: Cervix carcinoma stage III
     Dosage: 15MG/KG X 6 TIMES
     Route: 041
     Dates: start: 202503, end: 20250702

REACTIONS (6)
  - Gait disturbance [Not Recovered/Not Resolved]
  - Guillain-Barre syndrome [Not Recovered/Not Resolved]
  - Herpes zoster [Recovered/Resolved]
  - Meningitis [Unknown]
  - Hospitalisation [Unknown]
  - Myositis [Not Recovered/Not Resolved]

NARRATIVE: CASE EVENT DATE: 20250101
